FAERS Safety Report 8032175-X (Version None)
Quarter: 2012Q1

REPORT INFORMATION
  Report Type: 
  Country: None (occurrence: None)
  Receive Date: 20120110
  Receipt Date: 20120103
  Transmission Date: 20120608
  Serious: Yes (Hospitalization)
  Sender: FDA-Public Use
  Company Number: US-BIOGENIDEC-2011BI042071

PATIENT
  Age: 42 Year
  Sex: Female

DRUGS (3)
  1. COUMADIN [Concomitant]
  2. AVONEX [Suspect]
     Indication: MULTIPLE SCLEROSIS
     Route: 030
  3. HEPARIN [Concomitant]
     Dates: start: 20110901

REACTIONS (1)
  - TOOTH EXTRACTION [None]
